FAERS Safety Report 22154888 (Version 1)
Quarter: 2023Q1

REPORT INFORMATION
  Report Type: Spontaneous
  Country: US (occurrence: US)
  Receive Date: 20230330
  Receipt Date: 20230330
  Transmission Date: 20230418
  Serious: No
  Sender: FDA-Public Use
  Company Number: US-GLAXOSMITHKLINE-USCH2023013863

PATIENT
  Age: 71 Year

DRUGS (1)
  1. NICORETTE [Suspect]
     Active Substance: NICOTINE
     Indication: Product used for unknown indication
     Dosage: UNK
     Dates: start: 20230313, end: 20230316

REACTIONS (3)
  - Oral pain [Recovered/Resolved]
  - Suspected counterfeit product [Unknown]
  - Product complaint [Unknown]

NARRATIVE: CASE EVENT DATE: 20230313
